FAERS Safety Report 6220837-6 (Version None)
Quarter: 2009Q2

REPORT INFORMATION
  Report Type: 
  Country: None (occurrence: None)
  Receive Date: 20090604
  Receipt Date: 20090601
  Transmission Date: 20091009
  Serious: Yes (Other)
  Sender: FDA-Public Use
  Company Number: CA-WYE-G03777909

PATIENT

DRUGS (1)
  1. TIGECYCLINE (TIGECYCLINE, INJECTION) [Suspect]
     Route: 042
     Dates: start: 20090501, end: 20090501

REACTIONS (3)
  - HYPERSENSITIVITY [None]
  - RASH GENERALISED [None]
  - URTICARIA [None]
